FAERS Safety Report 5007484-9 (Version None)
Quarter: 2006Q2

REPORT INFORMATION
  Report Type: 
  Country: None (occurrence: None)
  Receive Date: 20060517
  Receipt Date: 20060505
  Transmission Date: 20061013
  Serious: Yes (Other)
  Sender: FDA-Public Use
  Company Number: 2005-04814

PATIENT
  Age: 54 Year
  Sex: Male

DRUGS (4)
  1. ANDRODERM [Suspect]
     Indication: BLOOD TESTOSTERONE DECREASED
     Dosage: 2 PATCH, DAILY, TRANSDERMAL
     Route: 062
     Dates: start: 20010101
  2. VIAGRA [Concomitant]
  3. GLUCOVANCE [Concomitant]
  4. ACTOS [Concomitant]

REACTIONS (9)
  - AGGRESSION [None]
  - ANTISOCIAL BEHAVIOUR [None]
  - CONFUSIONAL STATE [None]
  - DEPRESSION SUICIDAL [None]
  - DRUG ADMINISTRATION ERROR [None]
  - DRUG DISPENSING ERROR [None]
  - FEAR [None]
  - INCORRECT DOSE ADMINISTERED [None]
  - THINKING ABNORMAL [None]
